FAERS Safety Report 8095048-2 (Version None)
Quarter: 2012Q1

REPORT INFORMATION
  Report Type: 
  Country: None (occurrence: None)
  Receive Date: 20120131
  Receipt Date: 20120131
  Transmission Date: 20120608
  Serious: Yes (Life-Threatening, Hospitalization)
  Sender: FDA-Public Use
  Company Number: None

PATIENT
  Age: 48 Year
  Sex: Female
  Weight: 72.574 kg

DRUGS (2)
  1. METFORMIN HCL [Concomitant]
     Indication: DIABETES MELLITUS
     Dosage: TWO TABLETS
     Route: 048
     Dates: start: 20120109, end: 20120119
  2. TOPAMAX [Suspect]
     Indication: SLEEP DISORDER
     Dosage: TWO TABLETS
     Route: 048
     Dates: start: 20111216, end: 20120119

REACTIONS (7)
  - DIABETES MELLITUS [None]
  - NERVOUS SYSTEM DISORDER [None]
  - COGNITIVE DISORDER [None]
  - ANXIETY [None]
  - TREMOR [None]
  - BRADYCARDIA [None]
  - TACHYCARDIA [None]
